FAERS Safety Report 5892123-5 (Version None)
Quarter: 2008Q3

REPORT INFORMATION
  Report Type: 
  Country: None (occurrence: None)
  Receive Date: 20080908
  Receipt Date: 20080716
  Transmission Date: 20090109
  Serious: No
  Sender: FDA-Public Use
  Company Number: 002#2#2008-00416

PATIENT
  Age: 51 Year
  Sex: Female
  Weight: 62.1428 kg

DRUGS (3)
  1. NEUPRO [Suspect]
     Indication: RESTLESS LEGS SYNDROME
     Dosage: 10 MG/24H, 1 IN 1 D, TRANSDERMAL : 2MG/24H, 1 IN 2 D, TRANSDERMAL
     Route: 062
     Dates: start: 20071101, end: 20080401
  2. LUNESTA [Concomitant]
  3. ARICEPT [Concomitant]

REACTIONS (7)
  - AMNESIA [None]
  - DYSARTHRIA [None]
  - INCOHERENT [None]
  - INTENTIONAL OVERDOSE [None]
  - OFF LABEL USE [None]
  - PHARMACEUTICAL PRODUCT COMPLAINT [None]
  - UNEVALUABLE EVENT [None]
